FAERS Safety Report 8046289-1 (Version None)
Quarter: 2012Q1

REPORT INFORMATION
  Report Type: 
  Country: None (occurrence: None)
  Receive Date: 20120113
  Receipt Date: 20111229
  Transmission Date: 20120608
  Serious: Yes (Life-Threatening, Hospitalization)
  Sender: FDA-Public Use
  Company Number: ES-ROCHE-768843

PATIENT
  Sex: Female
  Weight: 63 kg

DRUGS (27)
  1. PREDNISONE [Concomitant]
  2. PREDNISONE [Concomitant]
  3. ENOXAPARIN [Concomitant]
  4. PREDNISONE [Concomitant]
  5. CLOPIDOGREL [Concomitant]
  6. MYCOPHENOLATE MOFETIL (CELLCEPT) [Suspect]
  7. MYCOPHENOLATE MOFETIL (CELLCEPT) [Suspect]
  8. PREDNISONE [Concomitant]
  9. PREDNISONE [Concomitant]
  10. OMEPRAZOLE [Concomitant]
  11. CALCIUM/VITAMIN D [Concomitant]
  12. FUROSEMIDE [Concomitant]
  13. BISOPROLOL FUMARATE [Concomitant]
  14. AMLODIPINE [Concomitant]
  15. MYCOPHENOLATE MOFETIL (CELLCEPT) [Suspect]
  16. COTRIM [Concomitant]
  17. NITROGLYCERIN [Concomitant]
  18. PRAVASTATIN [Concomitant]
  19. LORAZEPAM [Concomitant]
  20. AZATHIOPRINE [Concomitant]
  21. MYCOPHENOLATE MOFETIL (CELLCEPT) [Suspect]
     Dosage: CURRENT DOSE: 2000 MG
     Route: 065
  22. ASPIRIN [Concomitant]
  23. CITALOPRAM [Concomitant]
  24. AZATHIOPRINE [Concomitant]
  25. ENALAPRIL MALEATE [Concomitant]
  26. MYCOPHENOLATE MOFETIL (CELLCEPT) [Suspect]
     Indication: ANTI-NEUTROPHIL CYTOPLASMIC ANTIBODY POSITIVE VASCULITIS
     Route: 065
  27. ALENDRONATE SODIUM [Concomitant]
     Dosage: 70 MG C/ WEEK

REACTIONS (3)
  - LUNG INFILTRATION [None]
  - ENTEROCOCCAL INFECTION [None]
  - URINARY TRACT INFECTION [None]
